FAERS Safety Report 16214009 (Version 1)
Quarter: 2019Q2

REPORT INFORMATION
  Report Type: Report from Study
  Country: None (occurrence: JP)
  Receive Date: 20190418
  Receipt Date: 20190418
  Transmission Date: 20190711
  Serious: Yes (Other)
  Sender: FDA-Public Use
  Company Number: JP-BAUSCH-BL-2019-011628

PATIENT
  Sex: Male

DRUGS (3)
  1. OXALIPLATIN. [Suspect]
     Active Substance: OXALIPLATIN
     Indication: COLORECTAL CANCER
     Route: 065
  2. 5-FU [FLUOROURACIL] [Suspect]
     Active Substance: FLUOROURACIL
     Indication: COLORECTAL CANCER
     Dosage: DOSE QCY (EVERY CYCLICAL)
     Route: 065
  3. LEUCOVORIN CALCIUM. [Suspect]
     Active Substance: LEUCOVORIN CALCIUM
     Indication: COLORECTAL CANCER
     Dosage: DOSE QCY (EVERY CYCLICAL)
     Route: 065

REACTIONS (3)
  - Drug ineffective [Unknown]
  - Adenocarcinoma [Unknown]
  - Hepatic cancer recurrent [Unknown]
